FAERS Safety Report 10007187 (Version 1)
Quarter: 2014Q1

REPORT INFORMATION
  Report Type: Spontaneous
  Country: US (occurrence: US)
  Receive Date: 20140313
  Receipt Date: 20140313
  Transmission Date: 20141002
  Serious: Yes (Other)
  Sender: FDA-Public Use
  Company Number: US-PFIZER INC-2014071856

PATIENT
  Age: 62 Year
  Sex: Female
  Weight: 71.66 kg

DRUGS (2)
  1. VENLAFAXINE HCL [Suspect]
     Indication: DEPRESSION
     Dosage: 150 MG, 1X/DAY
     Route: 048
     Dates: start: 2010
  2. METOPROLOL [Concomitant]
     Indication: HYPERTENSION
     Dosage: 100 MG, 1X/DAY

REACTIONS (1)
  - Cerebrovascular accident [Unknown]
